FAERS Safety Report 7873066-4 (Version None)
Quarter: 2011Q4

REPORT INFORMATION
  Report Type: 
  Country: None (occurrence: None)
  Receive Date: 20111030
  Receipt Date: 20110421
  Transmission Date: 20120403
  Serious: No
  Sender: FDA-Public Use
  Company Number: US-AMGEN-USASP2011021185

PATIENT
  Sex: Female

DRUGS (4)
  1. ZANAFLEX [Concomitant]
     Dosage: 2 MG, UNK
  2. SYNTHROID [Concomitant]
     Dosage: 150 A?G, UNK
  3. ENBREL [Suspect]
     Indication: PRODUCT USED FOR UNKNOWN INDICATION
     Dosage: 50 MG, 2 TIMES/WK
     Route: 058
  4. SIMVASTATIN [Concomitant]
     Dosage: 80 MG, UNK

REACTIONS (2)
  - INJECTION SITE URTICARIA [None]
  - INJECTION SITE RASH [None]
